FAERS Safety Report 7782082-2 (Version None)
Quarter: 2011Q3

REPORT INFORMATION
  Report Type: 
  Country: None (occurrence: None)
  Receive Date: 20110927
  Receipt Date: 20110914
  Transmission Date: 20111222
  Serious: Yes (Hospitalization, Other)
  Sender: FDA-Public Use
  Company Number: US-ELI_LILLY_AND_COMPANY-US201002001261

PATIENT
  Sex: Female

DRUGS (1)
  1. FORTEO [Suspect]
     Indication: OSTEOPOROSIS
     Dosage: UNK, UNKNOWN
     Route: 065

REACTIONS (7)
  - JOINT INJURY [None]
  - LIMB INJURY [None]
  - LOWER LIMB FRACTURE [None]
  - INCONTINENCE [None]
  - FEMUR FRACTURE [None]
  - MALAISE [None]
  - FALL [None]
